FAERS Safety Report 5883648-7 (Version None)
Quarter: 2008Q3

REPORT INFORMATION
  Report Type: 
  Country: None (occurrence: None)
  Receive Date: 20080915
  Receipt Date: 20080905
  Transmission Date: 20090109
  Serious: Yes (Other)
  Sender: FDA-Public Use
  Company Number: GB-BAYER-200811720BNE

PATIENT
  Age: 34 Year
  Sex: Female
  Weight: 67 kg

DRUGS (1)
  1. MIRENA [Suspect]
     Indication: DRUG USE FOR UNKNOWN INDICATION
     Route: 015
     Dates: start: 20040831, end: 20080512

REACTIONS (3)
  - DEVICE BREAKAGE [None]
  - EMOTIONAL DISTRESS [None]
  - PHARMACEUTICAL PRODUCT COMPLAINT [None]
